FAERS Safety Report 8450339-8 (Version None)
Quarter: 2012Q2

REPORT INFORMATION
  Report Type: 
  Country: None (occurrence: None)
  Receive Date: 20120620
  Receipt Date: 20120614
  Transmission Date: 20120825
  Serious: Yes (Hospitalization)
  Sender: FDA-Public Use
  Company Number: PHHY2012JP051805

PATIENT

DRUGS (5)
  1. CRESTOR [Concomitant]
     Route: 048
  2. ZETIA [Concomitant]
     Route: 048
  3. CALBLOCK [Concomitant]
     Route: 048
  4. LAMISIL [Suspect]
     Indication: ONYCHOMYCOSIS
     Route: 048
  5. DIOVAN [Concomitant]
     Route: 048

REACTIONS (1)
  - INTERSTITIAL LUNG DISEASE [None]
